FAERS Safety Report 21198848 (Version 14)
Quarter: 2025Q3

REPORT INFORMATION
  Report Type: Report from Study
  Country: US (occurrence: US)
  Receive Date: 20220811
  Receipt Date: 20250715
  Transmission Date: 20251020
  Serious: Yes (Hospitalization, Other)
  Sender: TAKEDA
  Company Number: US-TAKEDA-2020TUS048837

PATIENT
  Sex: Female
  Weight: 126 kg

DRUGS (32)
  1. TEDUGLUTIDE [Suspect]
     Active Substance: TEDUGLUTIDE
     Indication: Short-bowel syndrome
     Dosage: 0.58 MILLILITER, QD
     Dates: start: 20190311
  2. TEDUGLUTIDE [Suspect]
     Active Substance: TEDUGLUTIDE
     Dosage: 0.58 MILLILITER, QD
     Dates: start: 20190317
  3. TEDUGLUTIDE [Suspect]
     Active Substance: TEDUGLUTIDE
     Dosage: 0.58 MILLILITER, QD
  4. TEDUGLUTIDE [Suspect]
     Active Substance: TEDUGLUTIDE
     Dosage: 0.58 MILLILITER, QD
  5. TEDUGLUTIDE [Suspect]
     Active Substance: TEDUGLUTIDE
     Dosage: 0.58 MILLILITER, QD
  6. TEDUGLUTIDE [Suspect]
     Active Substance: TEDUGLUTIDE
     Dosage: 0.58 MILLILITER, QD
  7. TEDUGLUTIDE [Suspect]
     Active Substance: TEDUGLUTIDE
     Dosage: 0.58 MILLILITER, QD
  8. TEDUGLUTIDE [Suspect]
     Active Substance: TEDUGLUTIDE
     Dosage: 0.58 MILLILITER, QD
  9. TEDUGLUTIDE [Suspect]
     Active Substance: TEDUGLUTIDE
     Dosage: 0.58 MILLILITER, QD
  10. TEDUGLUTIDE [Suspect]
     Active Substance: TEDUGLUTIDE
     Dosage: 0.58 MILLILITER, QD
  11. TEDUGLUTIDE [Suspect]
     Active Substance: TEDUGLUTIDE
     Dosage: 0.58 MILLILITER, QD
  12. TEDUGLUTIDE [Suspect]
     Active Substance: TEDUGLUTIDE
     Dosage: 0.58 MILLILITER, QD
  13. HYDRALAZINE HCL [Concomitant]
     Active Substance: HYDRALAZINE HYDROCHLORIDE
  14. LACTASE [Concomitant]
     Active Substance: LACTASE
  15. NOVOLIN N [Concomitant]
     Active Substance: INSULIN HUMAN
  16. NOVOLIN R [Concomitant]
     Active Substance: INSULIN HUMAN
  17. LUMIGAN [Concomitant]
     Active Substance: BIMATOPROST
  18. LOPERAMIDE [Concomitant]
     Active Substance: LOPERAMIDE
  19. METOPROLOL SUCCINATE [Concomitant]
     Active Substance: METOPROLOL SUCCINATE
  20. DICLOFENAC SODIUM [Concomitant]
     Active Substance: DICLOFENAC SODIUM
  21. POTASSIUM [Concomitant]
     Active Substance: POTASSIUM
  22. CALCIUM [Concomitant]
     Active Substance: CALCIUM
  23. MAGNESIUM [Concomitant]
     Active Substance: MAGNESIUM
  24. VITAMIN D2 [Concomitant]
     Active Substance: ERGOCALCIFEROL
  25. VITAMIN B12 [Concomitant]
     Active Substance: CYANOCOBALAMIN
  26. IRON [Concomitant]
     Active Substance: IRON
  27. CELECOXIB [Concomitant]
     Active Substance: CELECOXIB
  28. COMBIGAN [Concomitant]
     Active Substance: BRIMONIDINE TARTRATE\TIMOLOL MALEATE
  29. GABAPENTIN [Concomitant]
     Active Substance: GABAPENTIN
  30. VITAMIN C [Concomitant]
     Active Substance: ASCORBIC ACID
  31. BUMETANIDE [Concomitant]
     Active Substance: BUMETANIDE
  32. FERROUS SULFATE [Concomitant]
     Active Substance: FERROUS SULFATE

REACTIONS (24)
  - Lipoedema [Unknown]
  - Diarrhoea [Recovered/Resolved]
  - Candida infection [Recovered/Resolved]
  - Lymphoedema [Not Recovered/Not Resolved]
  - Spondylitis [Unknown]
  - Glycosylated haemoglobin abnormal [Unknown]
  - Pollakiuria [Unknown]
  - Back pain [Unknown]
  - Weight increased [Unknown]
  - Walking aid user [Unknown]
  - Wheelchair user [Unknown]
  - Gait disturbance [Unknown]
  - Physical product label issue [Unknown]
  - Product availability issue [Unknown]
  - Product packaging quantity issue [Unknown]
  - Product solubility abnormal [Unknown]
  - Product dose omission issue [Unknown]
  - Stress [Unknown]
  - Discomfort [Unknown]
  - Pain [Unknown]
  - Appetite disorder [Unknown]
  - Abdominal distension [Unknown]
  - Pruritus [Unknown]
  - Decreased appetite [Unknown]
